FAERS Safety Report 13589100 (Version 1)
Quarter: 2017Q2

REPORT INFORMATION
  Report Type: Spontaneous
  Country: US (occurrence: US)
  Receive Date: 20170529
  Receipt Date: 20170529
  Transmission Date: 20170830
  Serious: No
  Sender: FDA-Public Use
  Company Number: US-ASTRAZENECA-2017SE56373

PATIENT
  Sex: Female

DRUGS (4)
  1. FISH OIL [Concomitant]
     Active Substance: FISH OIL
     Indication: CARDIAC DISORDER
     Route: 048
  2. GARLIC. [Concomitant]
     Active Substance: GARLIC
     Indication: CARDIAC DISORDER
     Route: 048
  3. CRESTOR [Suspect]
     Active Substance: ROSUVASTATIN CALCIUM
     Indication: BLOOD CHOLESTEROL
     Route: 048
     Dates: end: 20170510
  4. CRESTOR [Suspect]
     Active Substance: ROSUVASTATIN CALCIUM
     Indication: BLOOD CHOLESTEROL
     Dosage: GENERIC
     Route: 065
     Dates: start: 20170510

REACTIONS (4)
  - Arthralgia [Not Recovered/Not Resolved]
  - Off label use [Unknown]
  - Arthropathy [Not Recovered/Not Resolved]
  - Drug ineffective [Unknown]
